FAERS Safety Report 9620944 (Version 1)
Quarter: 2013Q4

REPORT INFORMATION
  Report Type: Report from Study
  Country: DE (occurrence: DE)
  Receive Date: 20131015
  Receipt Date: 20131015
  Transmission Date: 20140711
  Serious: Yes (Hospitalization)
  Sender: FDA-Public Use
  Company Number: DE-ROCHE-1286730

PATIENT
  Sex: 0

DRUGS (5)
  1. RITUXIMAB [Suspect]
     Indication: SYSTEMIC LUPUS ERYTHEMATOSUS
     Route: 065
  2. MYCOPHENOLATE MOFETIL [Suspect]
     Indication: SYSTEMIC LUPUS ERYTHEMATOSUS
     Route: 065
  3. AZATHIOPRINE [Suspect]
     Indication: SYSTEMIC LUPUS ERYTHEMATOSUS
     Route: 065
  4. CYCLOPHOSPHAMIDE [Suspect]
     Indication: SYSTEMIC LUPUS ERYTHEMATOSUS
     Route: 065
  5. METHOTREXATE [Suspect]
     Indication: SYSTEMIC LUPUS ERYTHEMATOSUS
     Route: 065

REACTIONS (14)
  - Pseudomembranous colitis [Recovered/Resolved]
  - Meningitis bacterial [Recovered/Resolved]
  - Cellulitis [Recovered/Resolved]
  - Meningitis listeria [Recovered/Resolved]
  - Viral infection [Recovered/Resolved]
  - Tracheobronchitis [Recovered/Resolved]
  - Oesophageal candidiasis [Recovered/Resolved]
  - Bacterial infection [Recovered/Resolved]
  - Infusion related reaction [Unknown]
  - Oral herpes [Recovered/Resolved]
  - Urinary tract infection [Recovered/Resolved]
  - Deep vein thrombosis [Unknown]
  - Hypersensitivity [Unknown]
  - Off label use [Unknown]
